FAERS Safety Report 9839511 (Version 1)
Quarter: 2014Q1

REPORT INFORMATION
  Report Type: Spontaneous
  Country: US (occurrence: US)
  Receive Date: 20140124
  Receipt Date: 20140124
  Transmission Date: 20141002
  Serious: No
  Sender: FDA-Public Use
  Company Number: US-B.I. PHARMACEUTICALS,INC./RIDGEFIELD-2014-BI-02009BP

PATIENT
  Sex: Male

DRUGS (2)
  1. PRADAXA [Suspect]
     Indication: HEART RATE DECREASED
     Route: 048
  2. PRADAXA [Suspect]
     Indication: HYPERTENSION

REACTIONS (2)
  - Off label use [Unknown]
  - Off label use [Unknown]
